FAERS Safety Report 24201061 (Version 1)
Quarter: 2024Q3

REPORT INFORMATION
  Report Type: Spontaneous
  Country: US (occurrence: US)
  Receive Date: 20240812
  Receipt Date: 20240812
  Transmission Date: 20241016
  Serious: Yes (Other)
  Sender: PURDUE
  Company Number: US-PURDUE-USA-2024-0311250

PATIENT

DRUGS (3)
  1. DEXTROAMPHET SACCHARAT, AMPHET ASPARTATE, DEXTROAMPHET SULFATE AND AMP [Suspect]
     Active Substance: AMPHETAMINE ASPARTATE\AMPHETAMINE SULFATE\DEXTROAMPHETAMINE SACCHARATE\DEXTROAMPHETAMINE SULFATE
     Indication: Product used for unknown indication
     Dosage: UNK
     Route: 064
  2. DRONABINOL [Suspect]
     Active Substance: DRONABINOL
     Indication: Product used for unknown indication
     Dosage: UNK
     Route: 064
  3. METHAMPHETAMINE HYDROCHLORIDE [Suspect]
     Active Substance: METHAMPHETAMINE HYDROCHLORIDE
     Indication: Product used for unknown indication
     Dosage: UNK
     Route: 064

REACTIONS (23)
  - Congenital syphilis [Unknown]
  - Neurosyphilis [Unknown]
  - Neonatal respiratory failure [Unknown]
  - Hypoglycaemia neonatal [Unknown]
  - Thrombocytopenia neonatal [Unknown]
  - Neonatal respiratory acidosis [Unknown]
  - Hepatosplenomegaly neonatal [Unknown]
  - Intraventricular haemorrhage neonatal [Unknown]
  - Microcephaly [Unknown]
  - Patent ductus arteriosus [Unknown]
  - Haematochezia [Unknown]
  - Hydronephrosis [Unknown]
  - Newborn persistent pulmonary hypertension [Unknown]
  - Foetal exposure during pregnancy [Unknown]
  - Hyperbilirubinaemia neonatal [Unknown]
  - Jaundice neonatal [Unknown]
  - Atrial septal defect [Unknown]
  - Atrial enlargement [Unknown]
  - Right ventricular enlargement [Unknown]
  - Liver disorder [Unknown]
  - Abdominal discomfort [Unknown]
  - Faeces pale [Unknown]
  - Vomiting [Unknown]
